FAERS Safety Report 8313407 (Version 3)
Quarter: 2018Q2

REPORT INFORMATION
  Report Type: Report from Study
  Country: JP (occurrence: JP)
  Receive Date: 20111228
  Receipt Date: 20180530
  Transmission Date: 20180711
  Serious: Yes (Hospitalization)
  Sender: FDA-Public Use
  Company Number: PHHY2011JP112370

PATIENT
  Age: 39 Year
  Sex: Female

DRUGS (4)
  1. NAUZELIN [Concomitant]
     Active Substance: DOMPERIDONE
     Indication: PROPHYLAXIS
     Dosage: 20 MG, QD
     Route: 048
     Dates: start: 20090803
  2. SLOW-K [Concomitant]
     Active Substance: POTASSIUM CHLORIDE
     Indication: PROPHYLAXIS
     Dosage: 1200 MG, QD
     Route: 048
     Dates: start: 20090806
  3. TASIGNA [Suspect]
     Active Substance: NILOTINIB
     Indication: CHRONIC MYELOID LEUKAEMIA
     Dosage: 400 MG, BID
     Route: 048
     Dates: start: 20090803, end: 20110205
  4. FUROSEMIDE. [Concomitant]
     Active Substance: FUROSEMIDE
     Indication: PROPHYLAXIS
     Dosage: 40 MG, QD
     Route: 048
     Dates: start: 20090803

REACTIONS (15)
  - Erythema [Recovered/Resolved]
  - Hepatic function abnormal [Not Recovered/Not Resolved]
  - Sleep disorder [Not Recovered/Not Resolved]
  - Glycosylated haemoglobin increased [Recovered/Resolved]
  - Blood glucose increased [Recovered/Resolved]
  - Cough [Recovered/Resolved]
  - Facial paralysis [Recovering/Resolving]
  - Headache [Recovered/Resolved]
  - Hair disorder [Not Recovered/Not Resolved]
  - Alopecia [Recovered/Resolved]
  - Hypoaesthesia oral [Recovering/Resolving]
  - Pruritus [Recovered/Resolved]
  - Musculoskeletal stiffness [Recovering/Resolving]
  - Fatigue [Recovered/Resolved]
  - Nasopharyngitis [Recovered/Resolved]

NARRATIVE: CASE EVENT DATE: 20090806
